FAERS Safety Report 10170239 (Version 2)
Quarter: 2014Q2

REPORT INFORMATION
  Report Type: Spontaneous
  Country: CA (occurrence: CA)
  Receive Date: 20140513
  Receipt Date: 20140514
  Transmission Date: 20141212
  Serious: Yes (Life-Threatening, Hospitalization)
  Sender: FDA-Public Use
  Company Number: CA-BAYER-2014-064172

PATIENT
  Age: 57 Year
  Sex: Female
  Weight: 113 kg

DRUGS (2)
  1. GADOVIST [Suspect]
     Indication: NUCLEAR MAGNETIC RESONANCE IMAGING
     Dosage: 5 ML, ONCE
     Route: 042
     Dates: start: 20140428, end: 20140428
  2. GADOVIST [Suspect]
     Indication: HEPATIC LESION

REACTIONS (2)
  - Distributive shock [None]
  - Anaphylactic reaction [None]
